FAERS Safety Report 4845932-5 (Version None)
Quarter: 2005Q4

REPORT INFORMATION
  Report Type: 
  Country: None (occurrence: None)
  Receive Date: 20051128
  Receipt Date: 20051114
  Transmission Date: 20060501
  Serious: No
  Sender: FDA-Public Use
  Company Number: THYM-10610

PATIENT
  Age: 52 Year
  Sex: Female
  Weight: 67.7 kg

DRUGS (3)
  1. THYMOGLOBULIN [Suspect]
     Indication: PROPHYLAXIS AGAINST TRANSPLANT REJECTION
     Dosage: 34.5 MG ONCE IV
     Route: 042
     Dates: start: 20050617, end: 20050617
  2. THYMOGLOBULIN [Suspect]
     Indication: PROPHYLAXIS AGAINST TRANSPLANT REJECTION
     Dosage: 138 MG QD IV
     Route: 042
     Dates: start: 20050618, end: 20050619
  3. VANCOMYCIN [Concomitant]

REACTIONS (16)
  - ATRIAL FIBRILLATION [None]
  - BACTERAEMIA [None]
  - BLOOD BILIRUBIN INCREASED [None]
  - CEREBRAL INFARCTION [None]
  - CHOLESTASIS [None]
  - FALL [None]
  - HAEMODIALYSIS [None]
  - HEART RATE INCREASED [None]
  - HEPATIC CYST [None]
  - HEPATOMEGALY [None]
  - JAUNDICE [None]
  - LIVER FUNCTION TEST ABNORMAL [None]
  - RENAL FAILURE ACUTE [None]
  - STAPHYLOCOCCAL INFECTION [None]
  - STAPHYLOCOCCAL SEPSIS [None]
  - STEM CELL TRANSPLANT [None]
